FAERS Safety Report 14168362 (Version 2)
Quarter: 2018Q2

REPORT INFORMATION
  Report Type: Spontaneous
  Country: US (occurrence: US)
  Receive Date: 20171107
  Receipt Date: 20180515
  Transmission Date: 20180711
  Serious: No
  Sender: FDA-Public Use
  Company Number: US-SA-2017SA137515

PATIENT
  Sex: Female

DRUGS (2)
  1. TOUJEO [Suspect]
     Active Substance: INSULIN GLARGINE
     Indication: DIABETES MELLITUS
     Dosage: DOSE:12 UNIT(S)
     Route: 051
  2. SOLOSTAR [Suspect]
     Active Substance: DEVICE
     Indication: DIABETES MELLITUS

REACTIONS (3)
  - Injection site pain [Unknown]
  - Hypoglycaemia [Unknown]
  - Device issue [Unknown]
